FAERS Safety Report 9394450 (Version 1)
Quarter: 2013Q3

REPORT INFORMATION
  Report Type: Spontaneous
  Country: US (occurrence: US)
  Receive Date: 20130711
  Receipt Date: 20130711
  Transmission Date: 20140515
  Serious: No
  Sender: FDA-Public Use
  Company Number: US-PFIZER INC-2013201124

PATIENT
  Age: 43 Year
  Sex: Male
  Weight: 88.44 kg

DRUGS (1)
  1. DEPO-TESTOSTERONE [Suspect]
     Indication: BLOOD TESTOSTERONE DECREASED
     Dosage: 200 MG, WEEKLY
     Dates: start: 201306

REACTIONS (2)
  - Drug ineffective [Unknown]
  - Drug administration error [Unknown]
